FAERS Safety Report 7903194-6 (Version None)
Quarter: 2011Q4

REPORT INFORMATION
  Report Type: 
  Country: None (occurrence: None)
  Receive Date: 20111103
  Receipt Date: 20111028
  Transmission Date: 20120403
  Serious: Yes (Life-Threatening, Hospitalization, Disabling, Other)
  Sender: FDA-Public Use
  Company Number: 2011SP051117

PATIENT
  Age: 58 Year
  Sex: Female

DRUGS (4)
  1. ASTELIN [Concomitant]
  2. ALBUTEROL [Concomitant]
  3. NASONEX [Suspect]
     Indication: ASTHMA
  4. NASONEX [Suspect]
     Indication: MULTIPLE ALLERGIES

REACTIONS (7)
  - LOSS OF CONSCIOUSNESS [None]
  - CONTUSION [None]
  - TONGUE BITING [None]
  - VISUAL IMPAIRMENT [None]
  - SKIN DISORDER [None]
  - CONVULSION [None]
  - PRODUCT TASTE ABNORMAL [None]
